FAERS Safety Report 16129044 (Version 3)
Quarter: 2019Q2

REPORT INFORMATION
  Report Type: Report from Study
  Country: US (occurrence: US)
  Receive Date: 20190328
  Receipt Date: 20190603
  Transmission Date: 20190711
  Serious: Yes (Hospitalization, Other)
  Sender: FDA-Public Use
  Company Number: US-GILEAD-2019-0399121

PATIENT
  Age: 14 Year
  Sex: Male

DRUGS (1)
  1. AMBRISENTAN [Suspect]
     Active Substance: AMBRISENTAN
     Indication: PULMONARY HYPERTENSION
     Dosage: 10 MG, QD
     Route: 065
     Dates: start: 20180531

REACTIONS (4)
  - Off label use [Not Recovered/Not Resolved]
  - Sickle cell disease [Unknown]
  - Abdominal pain upper [Unknown]
  - Seizure [Unknown]
